FAERS Safety Report 18529011 (Version 1)
Quarter: 2020Q4

REPORT INFORMATION
  Report Type: Spontaneous
  Country: FR (occurrence: FR)
  Receive Date: 20201120
  Receipt Date: 20201120
  Transmission Date: 20210114
  Serious: Yes (Hospitalization, Other)
  Sender: FDA-Public Use
  Company Number: FR-ASTRAZENECA-2020SF51858

PATIENT
  Age: 27475 Day
  Sex: Female

DRUGS (2)
  1. TAGRISSO [Suspect]
     Active Substance: OSIMERTINIB
     Indication: LUNG CANCER METASTATIC
     Route: 048
  2. TAGRISSO [Suspect]
     Active Substance: OSIMERTINIB
     Indication: LUNG CANCER METASTATIC
     Dosage: RESUMED
     Route: 048
     Dates: start: 20200604

REACTIONS (8)
  - Anaemia [Unknown]
  - Wound abscess [Recovered/Resolved]
  - Asthenia [Unknown]
  - Fall [Unknown]
  - Confusional state [Unknown]
  - Gastric neoplasm [Unknown]
  - Depression [Unknown]
  - Weight decreased [Unknown]

NARRATIVE: CASE EVENT DATE: 20200530
